FAERS Safety Report 12382556 (Version 1)
Quarter: 2016Q2

REPORT INFORMATION
  Report Type: Spontaneous
  Country: PK (occurrence: PK)
  Receive Date: 20160518
  Receipt Date: 20160518
  Transmission Date: 20160815
  Serious: Yes (Life-Threatening, Hospitalization)
  Sender: FDA-Public Use
  Company Number: PK-VALIDUS PHARMACEUTICALS LLC-PK-2016VAL001562

PATIENT

DRUGS (2)
  1. CLAFORAN [Suspect]
     Active Substance: CEFOTAXIME SODIUM
     Indication: DIARRHOEA INFECTIOUS
     Dosage: UNK
     Route: 042
  2. CLAFORAN [Suspect]
     Active Substance: CEFOTAXIME SODIUM
     Indication: RESPIRATORY TRACT INFECTION

REACTIONS (2)
  - Seizure [Unknown]
  - Pyrexia [Unknown]
